FAERS Safety Report 8369284-1 (Version None)
Quarter: 2012Q2

REPORT INFORMATION
  Report Type: 
  Country: None (occurrence: None)
  Receive Date: 20120518
  Receipt Date: 20120512
  Transmission Date: 20120825
  Serious: Yes (Disabling, Other)
  Sender: FDA-Public Use
  Company Number: PHHY2012CA037952

PATIENT
  Sex: Female

DRUGS (1)
  1. ZOLEDRONOC ACID [Suspect]
     Indication: OSTEOPOROSIS
     Dosage: 5 MG, UNK
     Route: 042
     Dates: start: 20120423

REACTIONS (15)
  - FEELING HOT [None]
  - NECK PAIN [None]
  - HEADACHE [None]
  - PAIN IN EXTREMITY [None]
  - DECREASED APPETITE [None]
  - ARTHRALGIA [None]
  - BACK PAIN [None]
  - TREMOR [None]
  - DISTURBANCE IN ATTENTION [None]
  - FATIGUE [None]
  - COGNITIVE DISORDER [None]
  - VOMITING [None]
  - CHILLS [None]
  - ASTHENIA [None]
  - DIZZINESS [None]
